FAERS Safety Report 12127894 (Version 2)
Quarter: 2016Q1

REPORT INFORMATION
  Report Type: Spontaneous
  Country: US (occurrence: US)
  Receive Date: 20160229
  Receipt Date: 20160303
  Transmission Date: 20160526
  Serious: Yes (Hospitalization, Other)
  Sender: FDA-Public Use
  Company Number: US-ABBVIE-16P-163-1566014-00

PATIENT
  Age: 60 Year
  Sex: Male

DRUGS (7)
  1. VIAGRA [Suspect]
     Active Substance: SILDENAFIL CITRATE
     Indication: PRODUCT USED FOR UNKNOWN INDICATION
     Dosage: RFL DATE 08072002
     Route: 065
  2. AVELOX [Suspect]
     Active Substance: MOXIFLOXACIN HYDROCHLORIDE
     Indication: PRODUCT USED FOR UNKNOWN INDICATION
     Dosage: RFL DATE 09112003
     Route: 065
  3. GUAIFEN/SM HB/F-EPD [Suspect]
     Active Substance: DEXTROMETHORPHAN HYDROBROMIDE\GUAIFENESIN\PSEUDOEPHEDRINE
     Indication: PRODUCT USED FOR UNKNOWN INDICATION
     Dosage: RFL DATE 09112003
     Route: 065
  4. BIAXIN [Suspect]
     Active Substance: CLARITHROMYCIN
     Indication: PRODUCT USED FOR UNKNOWN INDICATION
     Dosage: RFL DATE 04082003
     Route: 065
  5. VIAGRA [Suspect]
     Active Substance: SILDENAFIL CITRATE
     Dosage: RFL DATE 12212002
     Route: 065
  6. VIAGRA [Suspect]
     Active Substance: SILDENAFIL CITRATE
     Dosage: RFL DATE 10082003
     Route: 065
  7. CEPHALEXIN. [Suspect]
     Active Substance: CEPHALEXIN
     Indication: PRODUCT USED FOR UNKNOWN INDICATION
     Dosage: RFL DATE 13102001
     Route: 065

REACTIONS (7)
  - Myocardial infarction [Unknown]
  - Visual acuity reduced [Not Recovered/Not Resolved]
  - Peripheral arterial occlusive disease [Unknown]
  - Cardiogenic shock [Unknown]
  - Renal cell carcinoma [Unknown]
  - Thoracic haemorrhage [Unknown]
  - Hypoacusis [Not Recovered/Not Resolved]

NARRATIVE: CASE EVENT DATE: 2011
